FAERS Safety Report 5376591-3 (Version None)
Quarter: 2007Q3

REPORT INFORMATION
  Report Type: 
  Country: None (occurrence: None)
  Receive Date: 20070702
  Receipt Date: 20070628
  Transmission Date: 20080115
  Serious: Yes (Hospitalization)
  Sender: FDA-Public Use
  Company Number: US-MERCK-0701USA00969

PATIENT
  Age: 61 Year
  Sex: Male
  Weight: 89 kg

DRUGS (5)
  1. FOSAMAX [Suspect]
     Route: 048
     Dates: start: 20030101, end: 20040101
  2. CELEBREX [Concomitant]
     Indication: OSTEOARTHRITIS
     Route: 065
     Dates: start: 19920101
  3. LISINOPRIL [Concomitant]
     Indication: HYPERTENSION
     Route: 065
     Dates: start: 19950101
  4. VALTREX [Concomitant]
     Indication: HERPES ZOSTER
     Route: 065
     Dates: start: 20040301, end: 20040901
  5. PREDNISONE [Concomitant]
     Indication: PAROPHTHALMIA
     Route: 065
     Dates: start: 20040101, end: 20041101

REACTIONS (37)
  - ABSCESS [None]
  - ACTINOMYCOSIS [None]
  - APHTHOUS STOMATITIS [None]
  - ARTHROPATHY [None]
  - BALANCE DISORDER [None]
  - BEHCET'S SYNDROME [None]
  - BONE TRIMMING [None]
  - COLLAPSE OF LUNG [None]
  - CONTUSION [None]
  - DENTAL CARIES [None]
  - DRUG INEFFECTIVE [None]
  - GINGIVAL PAIN [None]
  - GINGIVAL ULCERATION [None]
  - GLOSSITIS [None]
  - GOUTY ARTHRITIS [None]
  - HERPES ZOSTER [None]
  - IMMUNE SYSTEM DISORDER [None]
  - IMPAIRED HEALING [None]
  - LYMPHADENOPATHY [None]
  - MYOSITIS [None]
  - OEDEMA PERIPHERAL [None]
  - ORAL DISORDER [None]
  - ORAL HERPES [None]
  - OSTEOMYELITIS [None]
  - OSTEONECROSIS [None]
  - PNEUMONIA [None]
  - PNEUMONIA STREPTOCOCCAL [None]
  - PNEUMOTHORAX [None]
  - PRURITUS [None]
  - SKIN ULCER [None]
  - STAPHYLOCOCCAL INFECTION [None]
  - STOMATITIS [None]
  - STREPTOCOCCAL INFECTION [None]
  - TINNITUS [None]
  - TONGUE ULCERATION [None]
  - TOOTH DISORDER [None]
  - WEIGHT DECREASED [None]
